FAERS Safety Report 21601725 (Version 1)
Quarter: 2022Q4

REPORT INFORMATION
  Report Type: Report from Study
  Country: US (occurrence: US)
  Receive Date: 20221116
  Receipt Date: 20221116
  Transmission Date: 20230112
  Serious: No
  Sender: FDA-Public Use
  Company Number: US-ABBVIE-4192416

PATIENT

DRUGS (2)
  1. RINVOQ [Suspect]
     Active Substance: UPADACITINIB
     Indication: Product used for unknown indication
     Dosage: FORM STRENGTH: 15 MILLIGRAM
     Route: 048
  2. Covid 19 vaccine [Concomitant]
     Indication: COVID-19 immunisation
     Dosage: COVID VACCINE  ONE IN ONCE
     Route: 030

REACTIONS (2)
  - Influenza [Unknown]
  - Pneumonia [Unknown]
